FAERS Safety Report 7207030-5 (Version None)
Quarter: 2011Q1

REPORT INFORMATION
  Report Type: 
  Country: None (occurrence: None)
  Receive Date: 20110103
  Receipt Date: 20101221
  Transmission Date: 20110831
  Serious: Yes (Other)
  Sender: FDA-Public Use
  Company Number: B0686334A

PATIENT
  Age: 67 Year
  Sex: Female

DRUGS (3)
  1. PREDNISOLONE [Concomitant]
  2. BECLOMETHASONE DIPROPIONATE [Concomitant]
  3. CLENIL MODULITE [Suspect]
     Indication: BRONCHITIS
     Dosage: 400MCG TWICE PER DAY
     Route: 055

REACTIONS (1)
  - SKIN ATROPHY [None]
